FAERS Safety Report 6146789-5 (Version None)
Quarter: 2009Q2

REPORT INFORMATION
  Report Type: 
  Country: None (occurrence: None)
  Receive Date: 20090403
  Receipt Date: 20090403
  Transmission Date: 20091009
  Serious: No
  Sender: FDA-Public Use
  Company Number: None

PATIENT
  Age: 9 Year
  Sex: Female

DRUGS (3)
  1. KEPPRA [Suspect]
     Dosage: 250 MG 1 TAB(S) BID
  2. VITAMIN B6 [Suspect]
     Dosage: 50 MG 1 TAB(S) ONCE A DAY
  3. DIASTAT ACUDIAL [Suspect]
     Dosage: 10 MG 10 MG FOR SEIZURES GREATER THAN 3 MINUTES

REACTIONS (6)
  - CONVULSION [None]
  - DISTURBANCE IN ATTENTION [None]
  - HEADACHE [None]
  - MEMORY IMPAIRMENT [None]
  - POSTICTAL HEADACHE [None]
  - THERAPEUTIC RESPONSE UNEXPECTED WITH DRUG SUBSTITUTION [None]
